FAERS Safety Report 5087644-1 (Version None)
Quarter: 2006Q3

REPORT INFORMATION
  Report Type: 
  Country: None (occurrence: None)
  Receive Date: 20060823
  Receipt Date: 20060823
  Transmission Date: 20061208
  Serious: Yes (Hospitalization)
  Sender: FDA-Public Use
  Company Number: None

PATIENT
  Sex: Male
  Weight: 75 kg

DRUGS (5)
  1. CYCLOPHOSPHAMIDE [Suspect]
     Dosage: 1355 MG
  2. DOXORUBICIN HYDROCHLORIDE [Suspect]
     Dosage: 90 MG
  3. PREDNISONE TAB [Suspect]
     Dosage: 400 MG
  4. RITUXIMAB (MAAB C2B8 ANTI CD20, CHIMERIC) [Suspect]
     Dosage: 680 MG
  5. VINCRISTINE SULFATE [Suspect]
     Dosage: 2 MG

REACTIONS (2)
  - ATRIAL FIBRILLATION [None]
  - CARDIAC FAILURE CONGESTIVE [None]
